FAERS Safety Report 7583835-6 (Version None)
Quarter: 2011Q2

REPORT INFORMATION
  Report Type: 
  Country: None (occurrence: None)
  Receive Date: 20110628
  Receipt Date: 20110628
  Transmission Date: 20111010
  Serious: Yes (Other)
  Sender: FDA-Public Use
  Company Number: None

PATIENT
  Age: 51 Year
  Sex: Female
  Weight: 72.5755 kg

DRUGS (2)
  1. TOPIRAMATE [Suspect]
     Indication: NERVE COMPRESSION
     Dosage: 1TABLET TWICE ADAY OTHER
     Dates: start: 20110302, end: 20110520
  2. TOPIRAMATE [Suspect]
     Indication: INTERVERTEBRAL DISC PROTRUSION
     Dosage: 1TABLET TWICE ADAY OTHER
     Dates: start: 20110302, end: 20110520

REACTIONS (1)
  - ALOPECIA [None]
